FAERS Safety Report 19877008 (Version 3)
Quarter: 2022Q3

REPORT INFORMATION
  Report Type: Report from Study
  Country: JP (occurrence: JP)
  Receive Date: 20210923
  Receipt Date: 20220818
  Transmission Date: 20221027
  Serious: Yes (Hospitalization)
  Sender: FDA-Public Use
  Company Number: JP-ABBVIE-19K-087-3186811-00

PATIENT
  Age: 66 Year
  Sex: Female

DRUGS (7)
  1. CARBIDOPA\LEVODOPA [Suspect]
     Active Substance: CARBIDOPA\LEVODOPA
     Indication: Parkinson^s disease
     Dosage: MD : 4.0 ML CD : 2.5 ML/HR X 16 HRS
     Route: 050
     Dates: start: 20190806, end: 20190907
  2. CARBIDOPA\LEVODOPA [Suspect]
     Active Substance: CARBIDOPA\LEVODOPA
     Dosage: MD: 4 ML CD: 2.5 ML/HR X 16 HRS
     Route: 050
     Dates: start: 20190918
  3. ROTIGOTINE [Concomitant]
     Active Substance: ROTIGOTINE
     Indication: Parkinson^s disease
     Route: 062
  4. BENFOTIAMINE W/CYANOCOBALAMIN/PYRID [Concomitant]
     Indication: Prophylaxis
     Route: 048
  5. MAGNESIUM OXIDE [Concomitant]
     Active Substance: MAGNESIUM OXIDE
     Indication: Product used for unknown indication
     Route: 048
  6. MAGNESIUM OXIDE [Concomitant]
     Active Substance: MAGNESIUM OXIDE
     Dosage: 330
     Route: 048
     Dates: start: 20190918
  7. MOSAPRIDE CITRATE DIHYDRATE [Concomitant]
     Active Substance: MOSAPRIDE CITRATE DIHYDRATE
     Indication: Product used for unknown indication
     Route: 048
     Dates: start: 20190918

REACTIONS (13)
  - Defaecation disorder [Unknown]
  - Off label use [Unknown]
  - Incorrect route of product administration [Unknown]
  - Device issue [Unknown]
  - Back pain [Unknown]
  - Constipation [Unknown]
  - Abdominal distension [Unknown]
  - Device alarm issue [Unknown]
  - Device occlusion [Unknown]
  - Abdominal pain upper [Unknown]
  - Cognitive disorder [Unknown]
  - Product use issue [Unknown]
  - Incorrect product administration duration [Unknown]

NARRATIVE: CASE EVENT DATE: 20210801
